FAERS Safety Report 10045218 (Version 3)
Quarter: 2014Q2

REPORT INFORMATION
  Report Type: Report from Study
  Country: US (occurrence: US)
  Receive Date: 20140328
  Receipt Date: 20140417
  Transmission Date: 20141212
  Serious: Yes (Life-Threatening, Hospitalization)
  Sender: FDA-Public Use
  Company Number: US-MERCK-1403USA010649

PATIENT
  Age: 76 Year
  Sex: Male
  Weight: 104.9 kg

DRUGS (14)
  1. VORINOSTAT [Suspect]
     Indication: MYELODYSPLASTIC SYNDROME
     Dosage: 300 MG, BID ON DAY 3-9, CYCLE:1, CYCLE= 28DAYS
     Route: 048
     Dates: start: 20140302, end: 20140308
  2. AZACITIDINE [Suspect]
     Indication: MYELODYSPLASTIC SYNDROME
     Dosage: 75 MG/M2 SQ OR IV ON DAYS 1-7 OR 75 MG/M2 SQ OR IV ON DAYS 1-5 AND DAYS 8-9, CYCLE:1, CYCLE: 28 DAYS
     Dates: start: 20140228, end: 20140306
  3. CEFTRIAXONE SODIUM [Suspect]
     Dosage: UNK
  4. DOCUSATE SODIUM [Suspect]
     Dosage: UNK
  5. FLUCONAZOLE [Suspect]
     Dosage: UNK
  6. MAGNESIUM SULFATE [Suspect]
     Dosage: UNK
  7. METOPROLOL [Suspect]
     Dosage: UNK
  8. POLYETHYLENE GLYCOL [Suspect]
     Dosage: UNK
  9. PREDNISONE [Suspect]
     Dosage: UNK
     Route: 048
  10. PROMETHAZINE [Suspect]
     Dosage: UNK
  11. PROTONIX [Suspect]
     Dosage: UNK
  12. TAMSULOSIN HYDROCHLORIDE [Suspect]
     Dosage: UNK
  13. VALACYCLOVIR HYDROCHLORIDE [Suspect]
     Dosage: UNK
  14. ZOFRAN [Suspect]
     Dosage: UNK

REACTIONS (4)
  - Syncope [Not Recovered/Not Resolved]
  - Angina pectoris [Not Recovered/Not Resolved]
  - Platelet count decreased [Not Recovered/Not Resolved]
  - Device related infection [Not Recovered/Not Resolved]
